FAERS Safety Report 23382399 (Version 3)
Quarter: 2024Q1

REPORT INFORMATION
  Report Type: Report from Study
  Country: PL (occurrence: PL)
  Receive Date: 20240109
  Receipt Date: 20240327
  Transmission Date: 20240410
  Serious: Yes (Death, Hospitalization, Other)
  Sender: FDA-Public Use
  Company Number: PL-009507513-2311POL005065

PATIENT
  Age: 59 Year
  Sex: Male
  Weight: 76.5 kg

DRUGS (12)
  1. CARBOPLATIN [Suspect]
     Active Substance: CARBOPLATIN
     Indication: Non-small cell lung cancer metastatic
     Dosage: 5 AREA UNDER CURVE (AUC), 1Q3W
     Route: 042
     Dates: start: 20230704, end: 20230725
  2. CARBOPLATIN [Suspect]
     Active Substance: CARBOPLATIN
     Dosage: 4 AREA UNDER CURVE (AUC),  EVERY 3 WEEKS
     Route: 042
     Dates: start: 20230814, end: 20230906
  3. METHYLPREDNISOLONE [Suspect]
     Active Substance: METHYLPREDNISOLONE
     Indication: Hepatitis
     Dosage: 160 MG, 1X/DAY
     Dates: start: 20231106
  4. METHYLPREDNISOLONE [Suspect]
     Active Substance: METHYLPREDNISOLONE
     Dosage: 120 MG, 1X/DAY
     Dates: start: 20231103, end: 20231105
  5. PACLITAXEL [Suspect]
     Active Substance: PACLITAXEL
     Indication: Non-small cell lung cancer metastatic
     Dosage: 200 MILLIGRAM/SQ. METER, 1Q3W
     Route: 042
     Dates: start: 20230704, end: 20230725
  6. PACLITAXEL [Suspect]
     Active Substance: PACLITAXEL
     Dosage: 150 MILLIGRAM/SQ. METER, 1Q3W
     Route: 042
     Dates: start: 20230814, end: 20230906
  7. PEMBROLIZUMAB [Suspect]
     Active Substance: PEMBROLIZUMAB
     Indication: Non-small cell lung cancer metastatic
     Dosage: 200 MILLIGRAM, 1Q3W
     Route: 042
     Dates: start: 20230704, end: 20231018
  8. ACASUNLIMAB [Suspect]
     Active Substance: ACASUNLIMAB
     Indication: Non-small cell lung cancer metastatic
     Dosage: 100 MILLIGRAM, 1Q3W
     Route: 042
     Dates: start: 20230704, end: 20231018
  9. INDAPAMIDE [Concomitant]
     Active Substance: INDAPAMIDE
     Dosage: UNK
     Dates: start: 20100101
  10. PERINDOPRIL [Concomitant]
     Active Substance: PERINDOPRIL
     Dosage: UNK
     Dates: start: 20100101
  11. SANPROBI [Concomitant]
     Dosage: UNK
     Dates: start: 20230712
  12. OMEPRAZOLE [Concomitant]
     Active Substance: OMEPRAZOLE
     Dosage: UNK
     Dates: start: 20231103

REACTIONS (2)
  - Pneumonia [Fatal]
  - Hepatitis [Not Recovered/Not Resolved]

NARRATIVE: CASE EVENT DATE: 20231025
